FAERS Safety Report 4777877-3 (Version None)
Quarter: 2005Q3

REPORT INFORMATION
  Report Type: 
  Country: None (occurrence: None)
  Receive Date: 20050926
  Receipt Date: 20050622
  Transmission Date: 20060218
  Serious: Yes (Life-Threatening, Hospitalization)
  Sender: FDA-Public Use
  Company Number: US-BOEHRINGER INGELHEIM PHARMACEUTICALS, INC.-2005-BP-10675BP

PATIENT
  Sex: Female

DRUGS (1)
  1. CATAPRES-TTS-1 [Suspect]
     Route: 061
     Dates: end: 20050622

REACTIONS (3)
  - CEREBROVASCULAR ACCIDENT [None]
  - HYPOTENSION [None]
  - TERMINAL STATE [None]
